FAERS Safety Report 18494543 (Version 2)
Quarter: 2023Q2

REPORT INFORMATION
  Report Type: Spontaneous
  Country: DE (occurrence: DE)
  Receive Date: 20201112
  Receipt Date: 20230420
  Transmission Date: 20230721
  Serious: Yes (Hospitalization, Other)
  Sender: FDA-Public Use
  Company Number: DE-SUN PHARMACEUTICAL INDUSTRIES LTD-2020R1-267248

PATIENT
  Age: 52 Year
  Sex: Female

DRUGS (9)
  1. OLANZAPINE [Suspect]
     Active Substance: OLANZAPINE
     Indication: Agitation
     Dosage: 15 MILLIGRAM, DAILY
     Route: 065
  2. OLANZAPINE [Suspect]
     Active Substance: OLANZAPINE
     Indication: Bipolar disorder
     Dosage: 20 MILLIGRAM, DAILY
     Route: 065
  3. OLANZAPINE [Suspect]
     Active Substance: OLANZAPINE
     Indication: Mania
     Dosage: 10 MILLIGRAM, DAILY
     Route: 065
  4. DIAZEPAM [Suspect]
     Active Substance: DIAZEPAM
     Indication: Agitation
     Dosage: 25 MILLIGRAM, DAILY
     Route: 065
  5. DIAZEPAM [Suspect]
     Active Substance: DIAZEPAM
     Indication: Mania
  6. DIAZEPAM [Suspect]
     Active Substance: DIAZEPAM
     Indication: Bipolar disorder
  7. NALTREXONE [Suspect]
     Active Substance: NALTREXONE
     Indication: Alcohol abuse
     Dosage: 50 MILLIGRAM, DAILY
     Route: 048
  8. IBUPROFEN [Concomitant]
     Active Substance: IBUPROFEN
     Indication: Product used for unknown indication
     Dosage: 600 MILLIGRAM, DAILY
     Route: 065
  9. VENLAFAXINE SR [Concomitant]
     Indication: Product used for unknown indication
     Dosage: 75 MILLIGRAM, DAILY (SLOW RELEASE)
     Route: 065

REACTIONS (8)
  - Abdominal pain [Recovered/Resolved]
  - Dyschezia [Recovered/Resolved]
  - Constipation [Recovered/Resolved]
  - Gastrointestinal sounds abnormal [Recovered/Resolved]
  - Abdominal distension [Recovered/Resolved]
  - Abdominal tenderness [Recovered/Resolved]
  - Angioedema [Recovered/Resolved]
  - Urticaria [Recovered/Resolved]
